FAERS Safety Report 4662238-8 (Version None)
Quarter: 2005Q2

REPORT INFORMATION
  Report Type: 
  Country: None (occurrence: None)
  Receive Date: 20050512
  Receipt Date: 20050426
  Transmission Date: 20051028
  Serious: Yes (Other)
  Sender: FDA-Public Use
  Company Number: USA050188530

PATIENT
  Sex: Female
  Weight: 57 kg

DRUGS (9)
  1. EVISTA [Suspect]
     Dosage: 1 DSG FORM DAY
  2. NORVASC [Concomitant]
  3. ASPIRIN [Concomitant]
  4. LIPITOR [Concomitant]
  5. RANITIDINE [Concomitant]
  6. CRESTOR [Concomitant]
  7. NEPHROCAPS [Concomitant]
  8. SINGULAIR (MONTELUKAST) [Concomitant]
  9. VIOXX [Concomitant]

REACTIONS (4)
  - MUSCLE SPASMS [None]
  - PAIN IN EXTREMITY [None]
  - RASH [None]
  - RENAL CYST [None]
